FAERS Safety Report 5691845-9 (Version None)
Quarter: 2008Q2

REPORT INFORMATION
  Report Type: 
  Country: None (occurrence: None)
  Receive Date: 20080402
  Receipt Date: 20080320
  Transmission Date: 20081010
  Serious: Yes (Hospitalization)
  Sender: FDA-Public Use
  Company Number: ES-ELI_LILLY_AND_COMPANY-ES200803005447

PATIENT
  Age: 82 Year
  Sex: Female

DRUGS (3)
  1. FORTEO [Suspect]
     Indication: OSTEOPOROSIS
     Dosage: 20 UG, UNKNOWN
     Route: 058
     Dates: start: 20070101, end: 20080314
  2. CALCIUM [Concomitant]
     Indication: OSTEOPOROSIS
  3. ANALGESICS [Concomitant]
     Indication: PAIN

REACTIONS (4)
  - ARRHYTHMIA [None]
  - CHEST PAIN [None]
  - DIZZINESS [None]
  - MALAISE [None]
